FAERS Safety Report 11049090 (Version 1)
Quarter: 2015Q2

REPORT INFORMATION
  Report Type: Spontaneous
  Country: US (occurrence: US)
  Receive Date: 20150420
  Receipt Date: 20150420
  Transmission Date: 20150821
  Serious: No
  Sender: FDA-Public Use
  Company Number: US-009507513-1504USA009067

PATIENT
  Age: 57 Year
  Sex: Male

DRUGS (8)
  1. REBETOL [Suspect]
     Active Substance: RIBAVIRIN
     Indication: HEPATITIS C
     Dosage: UNK
     Route: 042
     Dates: start: 2010
  2. SOFOSBUVIR [Suspect]
     Active Substance: SOFOSBUVIR
     Dosage: 200 MG, QD
     Route: 048
     Dates: start: 20140313
  3. METOPROLOL [Concomitant]
     Active Substance: METOPROLOL
     Indication: HYPERTENSION
     Dosage: 50 MG, QD
     Route: 048
  4. TACROLIMUS. [Concomitant]
     Active Substance: TACROLIMUS
     Dosage: 2 MG EVERY MORNING AND 1 MG EVERY NIGHT
  5. AMLODIPINE [Concomitant]
     Active Substance: AMLODIPINE BESYLATE
     Indication: HYPERTENSION
     Dosage: 10 MG, QD
  6. CALCIUM ACETATE. [Concomitant]
     Active Substance: CALCIUM ACETATE
     Dosage: 2 DF, TID
  7. PEGINTRON [Suspect]
     Active Substance: PEGINTERFERON ALFA-2B
     Indication: HEPATITIS C
     Dosage: UNK
     Route: 042
     Dates: start: 2010
  8. SIMEPREVIR [Suspect]
     Active Substance: SIMEPREVIR
     Dosage: 150 MG, QD
     Dates: start: 20140313

REACTIONS (1)
  - No therapeutic response [Unknown]
